FAERS Safety Report 14920516 (Version 1)
Quarter: 2018Q2

REPORT INFORMATION
  Report Type: Spontaneous
  Country: US (occurrence: US)
  Receive Date: 20180502
  Receipt Date: 20180502
  Transmission Date: 20180711
  Serious: Yes (Hospitalization)
  Sender: FDA-Public Use
  Company Number: None

PATIENT
  Age: 78 Year
  Sex: Male
  Weight: 74.4 kg

DRUGS (3)
  1. PHENYTOIN XR [Concomitant]
     Active Substance: PHENYTOIN
  2. RIVAROXABAN [Suspect]
     Active Substance: RIVAROXABAN
     Indication: CEREBROVASCULAR ACCIDENT
     Dates: start: 20161223, end: 20180416
  3. RIVAROXABAN [Suspect]
     Active Substance: RIVAROXABAN
     Indication: TRANSIENT ISCHAEMIC ATTACK
     Dates: start: 20161223, end: 20180416

REACTIONS (3)
  - Cerebrovascular accident [None]
  - Treatment failure [None]
  - Drug interaction [None]

NARRATIVE: CASE EVENT DATE: 20180416
